FAERS Safety Report 12301030 (Version 1)
Quarter: 2016Q2

REPORT INFORMATION
  Report Type: Spontaneous
  Country: US (occurrence: US)
  Receive Date: 20160425
  Receipt Date: 20160425
  Transmission Date: 20160815
  Serious: No
  Sender: FDA-Public Use
  Company Number: US-BIOGEN-2016BI00208705

PATIENT

DRUGS (1)
  1. AVONEX [Suspect]
     Active Substance: INTERFERON BETA-1A
     Indication: MULTIPLE SCLEROSIS

REACTIONS (7)
  - Arthritis [Unknown]
  - Adverse drug reaction [Unknown]
  - Malaise [Unknown]
  - Drug intolerance [Unknown]
  - Drug ineffective [Unknown]
  - Adverse reaction [Unknown]
  - Depression [Unknown]
